FAERS Safety Report 8954699 (Version 1)
Quarter: 2012Q4

REPORT INFORMATION
  Report Type: 
  Country: US (occurrence: US)
  Receive Date: 20121207
  Receipt Date: 20121207
  Transmission Date: 20130627
  Serious: No
  Sender: FDA-Public Use
  Company Number: US-ASTRAZENECA-2012SE88561

PATIENT
  Age: 89 Year
  Sex: Female
  Weight: 48.5 kg

DRUGS (15)
  1. METOPROLOL ER [Suspect]
     Route: 048
  2. CRESTOR [Suspect]
     Indication: BLOOD CHOLESTEROL INCREASED
     Route: 048
     Dates: end: 201211
  3. LIPITOR [Suspect]
     Indication: BLOOD CHOLESTEROL
     Route: 065
     Dates: start: 2012
  4. BABY ASPIRIN [Concomitant]
     Indication: CARDIAC DISORDER
  5. THERAGRAN EQUIVALENT [Concomitant]
     Indication: HYPOVITAMINOSIS
  6. VITAMIN D [Concomitant]
     Indication: HYPOVITAMINOSIS
  7. I CAPS [Concomitant]
     Indication: EYE DISORDER
  8. CITRACAL [Concomitant]
     Indication: BONE DENSITY ABNORMAL
  9. CITRACAL [Concomitant]
     Indication: BLOOD CALCIUM
  10. CITRACAL [Concomitant]
     Indication: VITAMIN D
  11. METFORMIN [Concomitant]
  12. MECLIZINE [Concomitant]
     Indication: VERTIGO
  13. FOLIC ACID [Concomitant]
  14. METHOLRERATE [Concomitant]
     Indication: ARTHRITIS
  15. METHOLRERATE [Concomitant]
     Indication: HEADACHE

REACTIONS (6)
  - Vertigo [Unknown]
  - Arthritis [Unknown]
  - Muscle spasms [Unknown]
  - Pain in extremity [Unknown]
  - Headache [Unknown]
  - Off label use [Unknown]
